FAERS Safety Report 19198250 (Version 2)
Quarter: 2021Q3

REPORT INFORMATION
  Report Type: Spontaneous
  Country: US (occurrence: US)
  Receive Date: 20210430
  Receipt Date: 20210704
  Transmission Date: 20211014
  Serious: Yes (Other)
  Sender: FDA-Public Use
  Company Number: US-TEVA-2021-US-1904636

PATIENT
  Age: 30 Year
  Sex: Female

DRUGS (5)
  1. TOPIRAMATE. [Suspect]
     Active Substance: TOPIRAMATE
     Indication: MULTIPLE SCLEROSIS
     Dosage: 300 MILLIGRAM DAILY;
     Route: 048
  2. GABAPENTIN. [Concomitant]
     Active Substance: GABAPENTIN
     Indication: MULTIPLE SCLEROSIS
     Dosage: 600 MILLIGRAM DAILY; THREE TIMES DAILY
     Route: 048
  3. DANAZOL. [Concomitant]
     Active Substance: DANAZOL
     Indication: IMPAIRED GASTRIC EMPTYING
     Dosage: 400 MILLIGRAM DAILY;
     Route: 048
  4. BACLOFEN. [Concomitant]
     Active Substance: BACLOFEN
     Indication: IMPAIRED GASTRIC EMPTYING
     Dosage: 60 MILLIGRAM DAILY; THREE TIMES DAILY
     Route: 048
  5. FAMOTIDINE. [Concomitant]
     Active Substance: FAMOTIDINE
     Indication: IMPAIRED GASTRIC EMPTYING
     Dosage: 40 MILLIGRAM DAILY;
     Route: 048

REACTIONS (2)
  - Metabolic acidosis [Recovering/Resolving]
  - Hypophosphataemia [Recovered/Resolved]
